FAERS Safety Report 23368547 (Version 1)
Quarter: 2024Q1

REPORT INFORMATION
  Report Type: Spontaneous
  Country: CN (occurrence: CN)
  Receive Date: 20240105
  Receipt Date: 20240105
  Transmission Date: 20240410
  Serious: Yes (Hospitalization, Other)
  Sender: FDA-Public Use
  Company Number: None

PATIENT
  Age: 40 Year
  Sex: Female

DRUGS (9)
  1. IFOSFAMIDE [Suspect]
     Active Substance: IFOSFAMIDE
     Indication: Ovarian cancer
     Dosage: 2 G, ONE TIME IN ONE DAY, D1-D3, DILUTED WITH 500 ML OF 0.9 % SODIUM CHLORIDE
     Route: 041
     Dates: start: 20231211, end: 20231213
  2. IFOSFAMIDE [Suspect]
     Active Substance: IFOSFAMIDE
     Indication: Neoplasm
  3. SODIUM CHLORIDE [Suspect]
     Active Substance: SODIUM CHLORIDE
     Indication: Medication dilution
     Dosage: 500 ML, ONE TIME IN ONE DAY, D1-D3, USED TO DILUTE 2 G OF IFOSFAMIDE
     Route: 041
     Dates: start: 20231211, end: 20231213
  4. SODIUM CHLORIDE [Suspect]
     Active Substance: SODIUM CHLORIDE
     Dosage: 80 ML, ONE TIME IN ONE DAY, ST, USED TO DILUTE 400 MG OF PACLITAXEL FOR INJECTION (ALBUMIN-BINDING T
     Route: 041
     Dates: start: 20231211, end: 20231211
  5. DEXTROSE [Suspect]
     Active Substance: DEXTROSE\DEXTROSE MONOHYDRATE
     Indication: Medication dilution
     Dosage: 500 ML, ONE TIME IN ONE DAY, ST, USED TO DILUTE 600 MG OF CARBOPLATIN
     Route: 041
     Dates: start: 20231211, end: 20231211
  6. CARBOPLATIN [Suspect]
     Active Substance: CARBOPLATIN
     Indication: Ovarian cancer
     Dosage: 600 MG, ONE TIME IN ONE DAY, ST, DILUTED WITH 500 ML OF 5 % GLUCOSE
     Route: 041
     Dates: start: 20231211, end: 20231211
  7. CARBOPLATIN [Suspect]
     Active Substance: CARBOPLATIN
     Indication: Neoplasm
  8. PACLITAXEL [Suspect]
     Active Substance: PACLITAXEL
     Indication: Ovarian cancer
     Dosage: 400 MG, ONE TIME IN ONE DAY, ST, DILUTED WITH 80 ML OF 0.9 % SODIUM CHLORIDE
     Route: 041
     Dates: start: 20231211, end: 20231211
  9. PACLITAXEL [Suspect]
     Active Substance: PACLITAXEL
     Indication: Neoplasm

REACTIONS (1)
  - Myelosuppression [Recovering/Resolving]

NARRATIVE: CASE EVENT DATE: 20231218
